FAERS Safety Report 5691420-6 (Version None)
Quarter: 2008Q2

REPORT INFORMATION
  Report Type: 
  Country: None (occurrence: None)
  Receive Date: 20080401
  Receipt Date: 20080401
  Transmission Date: 20081010
  Serious: Yes (Other)
  Sender: FDA-Public Use
  Company Number: None

PATIENT
  Age: 55 Year
  Sex: Male
  Weight: 72 kg

DRUGS (1)
  1. VARENICLINE [Suspect]
     Indication: SMOKING CESSATION THERAPY
     Dates: start: 20080111, end: 20080123

REACTIONS (7)
  - DEPRESSION [None]
  - FATIGUE [None]
  - IRRITABILITY [None]
  - SEDATION [None]
  - SOMNOLENCE [None]
  - TEARFULNESS [None]
  - TREATMENT NONCOMPLIANCE [None]
